FAERS Safety Report 9120143 (Version 1)
Quarter: 2013Q1

REPORT INFORMATION
  Report Type: Spontaneous
  Country: BG (occurrence: BG)
  Receive Date: 20130226
  Receipt Date: 20130226
  Transmission Date: 20140127
  Serious: Yes (Other)
  Sender: FDA-Public Use
  Company Number: BG-JNJFOC-20130207940

PATIENT
  Age: 43 Year
  Sex: Female

DRUGS (1)
  1. RISPERIDONE [Suspect]
     Indication: SCHIZOPHRENIA
     Route: 048

REACTIONS (6)
  - Weight increased [Recovering/Resolving]
  - Glucose tolerance impaired [Unknown]
  - Papilloedema [Recovered/Resolved]
  - Intracranial pressure increased [Recovering/Resolving]
  - Menstruation irregular [Recovered/Resolved]
  - Hyperprolactinaemia [Recovered/Resolved]
